FAERS Safety Report 9882043 (Version 3)
Quarter: 2014Q1

REPORT INFORMATION
  Report Type: Spontaneous
  Country: DE (occurrence: DE)
  Receive Date: 20140207
  Receipt Date: 20140327
  Transmission Date: 20141002
  Serious: Yes (Other)
  Sender: FDA-Public Use
  Company Number: DE-TEVA-459490GER

PATIENT
  Age: 69 Year
  Sex: Female

DRUGS (5)
  1. TAMOXIFEN-RATIOPHARM 20 MG TABLETTEN [Suspect]
     Indication: BREAST CANCER
     Dosage: 20 MILLIGRAM DAILY;
     Dates: start: 20130715
  2. PREDNISOLONE [Interacting]
     Dosage: 20 MILLIGRAM DAILY;
     Dates: start: 20121212
  3. BISOPROLOL [Suspect]
     Dosage: 5 MILLIGRAM DAILY;
     Dates: start: 20120101
  4. IBUPROFEN [Concomitant]
  5. PANTOPRAZOL [Concomitant]

REACTIONS (11)
  - Altered state of consciousness [Unknown]
  - Disorientation [Unknown]
  - Vision blurred [Recovered/Resolved]
  - Vertigo [Recovered/Resolved]
  - Drug interaction [Unknown]
  - Visual impairment [Recovered/Resolved]
  - General physical health deterioration [Recovered/Resolved]
  - Dizziness [Recovered/Resolved]
  - Dizziness [Recovered/Resolved]
  - Visual acuity reduced [Recovered/Resolved]
  - Visual impairment [Recovered/Resolved]
